FAERS Safety Report 9879244 (Version 1)
Quarter: 2014Q1

REPORT INFORMATION
  Report Type: Spontaneous
  Country: US (occurrence: US)
  Receive Date: 20140206
  Receipt Date: 20140206
  Transmission Date: 20141002
  Serious: No
  Sender: FDA-Public Use
  Company Number: US-ALLERGAN-1314214US

PATIENT
  Sex: Male

DRUGS (2)
  1. BOTOX COSMETIC [Suspect]
     Indication: PRODUCT USED FOR UNKNOWN INDICATION
     Dosage: 120 UNK, UNK
     Dates: start: 20130828
  2. BOTOX COSMETIC [Suspect]
     Dosage: 120 UNITS, SINGLE
     Route: 030
     Dates: start: 20130822

REACTIONS (2)
  - Drug ineffective [Unknown]
  - Drug ineffective [Unknown]
